FAERS Safety Report 17806183 (Version 2)
Quarter: 2020Q3

REPORT INFORMATION
  Report Type: Spontaneous
  Country: DE (occurrence: DE)
  Receive Date: 20200520
  Receipt Date: 20200717
  Transmission Date: 20201102
  Serious: Yes (Hospitalization, Other)
  Sender: FDA-Public Use
  Company Number: DE-TEVA-2020-DE-1236185

PATIENT
  Age: 63 Year
  Sex: Female
  Weight: 68 kg

DRUGS (18)
  1. VALSARTAN COMP. HEUMANN 160 MG/12.5 MG [Suspect]
     Active Substance: HYDROCHLOROTHIAZIDE\VALSARTAN
     Indication: HYPERTENSION
     Dosage: VALSARTAN COMP. HEUMANN 160 MG/12.5 MG
     Dates: start: 201209, end: 201211
  2. VERAPAMIL [Concomitant]
     Active Substance: VERAPAMIL HYDROCHLORIDE
     Dates: start: 201506, end: 2016
  3. AMOXICILLIN. [Concomitant]
     Active Substance: AMOXICILLIN
     Dates: start: 201209
  4. VALSARTAN COMP. ABZ 320 MG/12,5 MG FILMTABLETTEN [Suspect]
     Active Substance: HYDROCHLOROTHIAZIDE\VALSARTAN
     Indication: HYPERTENSION
     Dosage: 1 DF CONTAINS 320 MG VALSARTAN AND 12.5 MG HYDROCHLOROTHIAZIDE
     Route: 048
     Dates: start: 201412, end: 201807
  5. VALSARTAN COMP. CT 320/12.5 MG FILMTABLETTEN [Suspect]
     Active Substance: HYDROCHLOROTHIAZIDE\VALSARTAN
     Indication: HYPERTENSION
     Dosage: 1 DF CONTAINS 320 MG VALSARTAN AND 12.5 MG HYDROCHLOROTHIAZIDE
     Dates: start: 201206, end: 201209
  6. BISOPROLOL [Concomitant]
     Active Substance: BISOPROLOL
  7. MONURIL 3000 [Concomitant]
     Dates: start: 201203
  8. MOXONIDIN [Concomitant]
     Active Substance: MOXONIDINE
     Dates: end: 2013
  9. LERCANIDIPIN [Concomitant]
     Active Substance: LERCANIDIPINE
     Dates: start: 201607
  10. VALSARTAN ACTAVIS COMP. 320MG/12.5 MG [Suspect]
     Active Substance: HYDROCHLOROTHIAZIDE\VALSARTAN
     Dosage: VALSARTAN ACTAVIS COMP. 320MG/12.5 MG
     Dates: start: 201211, end: 201406
  11. VALSACOR COMP. 320 MG/12.5 MG [Suspect]
     Active Substance: HYDROCHLOROTHIAZIDE\VALSARTAN
     Dosage: VALSACOR COMP. 320 MG/12.5 MG
     Dates: start: 201802
  12. L?THYROX 75 [Concomitant]
  13. FLECAINID [Concomitant]
     Active Substance: FLECAINIDE
     Dosage: AS REQUIRED
     Dates: start: 201306, end: 2015
  14. CLEXANE [Concomitant]
     Active Substance: ENOXAPARIN SODIUM
     Dates: start: 201510
  15. XARELTO 20 MG FILMTABLETTEN [Concomitant]
     Dosage: 20 MILLIGRAM DAILY;
     Dates: start: 201410
  16. NOVAMINSULFON [Concomitant]
     Active Substance: METAMIZOLE
     Dates: start: 201209
  17. AMLODIPIN [Concomitant]
     Active Substance: AMLODIPINE BESYLATE
     Dates: end: 2013
  18. NITROLINGUAL [Concomitant]
     Active Substance: NITROGLYCERIN

REACTIONS (6)
  - Product impurity [Unknown]
  - Emotional distress [Unknown]
  - Bladder transitional cell carcinoma stage II [Not Recovered/Not Resolved]
  - Bladder transitional cell carcinoma recurrent [Not Recovered/Not Resolved]
  - Exercise tolerance decreased [Unknown]
  - Fear of disease [Unknown]

NARRATIVE: CASE EVENT DATE: 201510
